FAERS Safety Report 8252156-0 (Version None)
Quarter: 2012Q2

REPORT INFORMATION
  Report Type: 
  Country: None (occurrence: None)
  Receive Date: 20120402
  Receipt Date: 20110428
  Transmission Date: 20120825
  Serious: No
  Sender: FDA-Public Use
  Company Number: US-ABBOTT-11P-163-0804457-00

PATIENT
  Sex: Female

DRUGS (1)
  1. TESTOSTERONE [Suspect]
     Indication: ACCIDENTAL EXPOSURE
     Dosage: DAILY DOSE:  UNKNOWN, AS USED: 1 PERCENT
     Route: 062
     Dates: start: 20110330, end: 20110417

REACTIONS (2)
  - ALOPECIA [None]
  - ACCIDENTAL EXPOSURE [None]
